FAERS Safety Report 8859234 (Version 2)
Quarter: 2012Q4

REPORT INFORMATION
  Report Type: 
  Country: PK (occurrence: PK)
  Receive Date: 20121024
  Receipt Date: 20121211
  Transmission Date: 20130627
  Serious: Yes (Other)
  Sender: FDA-Public Use
  Company Number: US-PFIZER INC-2012264292

PATIENT
  Age: 26 Year
  Sex: Male

DRUGS (2)
  1. SUTENT [Suspect]
     Indication: ALVEOLAR SOFT PART SARCOMA METASTATIC
     Dosage: 50 mg, cyclic
     Route: 048
     Dates: start: 20101221, end: 20110802
  2. CEDIRANIB [Suspect]
     Indication: ALVEOLAR SOFT PART SARCOMA
     Dosage: UNK

REACTIONS (11)
  - Cerebral haemorrhage [Recovered/Resolved]
  - Disease progression [Unknown]
  - Alveolar soft part sarcoma metastatic [Unknown]
  - Gastrointestinal disorder [Unknown]
  - Glossitis [Unknown]
  - Oral mucosal exfoliation [Unknown]
  - Dysphagia [Unknown]
  - Dyspepsia [Unknown]
  - Diarrhoea [Unknown]
  - Abdominal pain [Unknown]
  - Hair colour changes [Unknown]
